FAERS Safety Report 6272116-9 (Version None)
Quarter: 2009Q3

REPORT INFORMATION
  Report Type: 
  Country: None (occurrence: None)
  Receive Date: 20090717
  Receipt Date: 20090713
  Transmission Date: 20100115
  Serious: Yes (Hospitalization)
  Sender: FDA-Public Use
  Company Number: R0003453A

PATIENT
  Age: 79 Year
  Sex: Female

DRUGS (2)
  1. BLINDED VACCINE [Suspect]
     Route: 030
     Dates: start: 20081013, end: 20081013
  2. ALBUTEROL [Suspect]
     Indication: CHRONIC OBSTRUCTIVE PULMONARY DISEASE
     Route: 055
     Dates: start: 20060127, end: 20081121

REACTIONS (2)
  - ATRIAL FIBRILLATION [None]
  - RESPIRATORY FAILURE [None]
